FAERS Safety Report 24217732 (Version 1)
Quarter: 2024Q3

REPORT INFORMATION
  Report Type: Report from Study
  Country: US (occurrence: US)
  Receive Date: 20240816
  Receipt Date: 20240816
  Transmission Date: 20241017
  Serious: Yes (Hospitalization)
  Sender: JOHNSON AND JOHNSON
  Company Number: US-JNJFOC-20240835781

PATIENT
  Sex: Female

DRUGS (8)
  1. SPRAVATO [Suspect]
     Active Substance: ESKETAMINE
     Indication: Depression
     Dosage: ^^56 MG, 10 TOTAL DOSES^^
     Dates: start: 20191120, end: 20200103
  2. SPRAVATO [Suspect]
     Active Substance: ESKETAMINE
     Dosage: ^^84 MG, 3 TOTAL DOSES^^
     Dates: start: 20200109, end: 20200131
  3. SPRAVATO [Suspect]
     Active Substance: ESKETAMINE
     Dosage: ^^56 MG, 10 TOTAL DOSES^^
     Dates: start: 20210107, end: 20210212
  4. SPRAVATO [Suspect]
     Active Substance: ESKETAMINE
     Dosage: ^^84 MG, 1 TOTAL DOSE^^
     Dates: start: 20210219, end: 20210219
  5. SPRAVATO [Suspect]
     Active Substance: ESKETAMINE
     Dosage: ^^56 MG, 1 TOTAL DOSE^^
     Dates: start: 20210226, end: 20210226
  6. SPRAVATO [Suspect]
     Active Substance: ESKETAMINE
     Dosage: ^^84 MG, 1 TOTAL DOSE^^
     Dates: start: 20210305, end: 20210305
  7. SPRAVATO [Suspect]
     Active Substance: ESKETAMINE
     Dosage: ^^56 MG, 1 TOTAL DOSE^^
     Dates: start: 20210312, end: 20210312
  8. SPRAVATO [Suspect]
     Active Substance: ESKETAMINE
     Dosage: ^^84 MG, 74 TOTAL DOSES^^
     Dates: start: 20210326, end: 20240606

REACTIONS (1)
  - Hospitalisation [Unknown]
